FAERS Safety Report 19025240 (Version 2)
Quarter: 2021Q2

REPORT INFORMATION
  Report Type: Report from Study
  Country: US (occurrence: US)
  Receive Date: 20210318
  Receipt Date: 20210419
  Transmission Date: 20210717
  Serious: No
  Sender: FDA-Public Use
  Company Number: NVSC2021US057779

PATIENT
  Sex: Male

DRUGS (1)
  1. ENTRESTO [Suspect]
     Active Substance: SACUBITRIL\VALSARTAN
     Indication: PRODUCT USED FOR UNKNOWN INDICATION
     Dosage: 1 DF(24/26 MG) , BID
     Route: 048
     Dates: start: 20210228

REACTIONS (4)
  - Dizziness [Unknown]
  - Pollakiuria [Unknown]
  - Confusional state [Unknown]
  - Hypotension [Unknown]
